FAERS Safety Report 17719754 (Version 2)
Quarter: 2020Q2

REPORT INFORMATION
  Report Type: Report from Study
  Country: CA (occurrence: CA)
  Receive Date: 20200428
  Receipt Date: 20200626
  Transmission Date: 20200714
  Serious: Yes (Hospitalization, Other)
  Sender: FDA-Public Use
  Company Number: PHHY2019CA077084

PATIENT
  Age: 78 Year
  Sex: Female

DRUGS (7)
  1. ROSUVASTATINE [Concomitant]
     Active Substance: ROSUVASTATIN
     Dosage: ROSUVASTATIN AND AMLODIPINE TOGETHER AT BEDTIME
     Route: 065
  2. PREDNISONE. [Concomitant]
     Active Substance: PREDNISONE
     Indication: PRODUCT USED FOR UNKNOWN INDICATION
     Dosage: 50 MG, QD (FOR 5 DAYS)
     Route: 065
     Dates: start: 20191007
  3. AMLODIPINE [Concomitant]
     Active Substance: AMLODIPINE BESYLATE
     Indication: BLOOD PRESSURE ABNORMAL
     Dosage: 2.5 MG, BID
     Route: 065
     Dates: start: 2019
  4. AMLODIPINE [Concomitant]
     Active Substance: AMLODIPINE BESYLATE
     Dosage: ROSUVASTATIN AND AMLODIPINE TOGETHER AT BEDTIME
     Route: 065
  5. SANDOSTATIN LAR DEPOT [Suspect]
     Active Substance: OCTREOTIDE ACETATE
     Indication: CARCINOID SYNDROME
     Dosage: 30 MG, QMO
     Route: 030
     Dates: start: 20190225
  6. ROSUVASTATINE [Concomitant]
     Active Substance: ROSUVASTATIN
     Indication: PRODUCT USED FOR UNKNOWN INDICATION
     Dosage: IN THE AM
     Route: 065
  7. ADALAT [Concomitant]
     Active Substance: NIFEDIPINE
     Indication: BLOOD PRESSURE ABNORMAL
     Dosage: UNK
     Route: 065
     Dates: end: 2019

REACTIONS (15)
  - Chest discomfort [Unknown]
  - Faeces discoloured [Unknown]
  - Hypertension [Recovering/Resolving]
  - Constipation [Unknown]
  - Swelling [Unknown]
  - Abdominal pain [Unknown]
  - Contusion [Unknown]
  - Cystitis [Recovered/Resolved]
  - Abdominal pain lower [Recovering/Resolving]
  - Pneumonia [Recovering/Resolving]
  - Cardiomegaly [Unknown]
  - Dyspnoea [Recovering/Resolving]
  - Intestinal obstruction [Unknown]
  - Chest pain [Unknown]
  - Chronic obstructive pulmonary disease [Unknown]

NARRATIVE: CASE EVENT DATE: 2019
